FAERS Safety Report 8396800-6 (Version None)
Quarter: 2012Q1

REPORT INFORMATION
  Report Type: 
  Country: None (occurrence: None)
  Receive Date: 20120323
  Receipt Date: 20110519
  Transmission Date: 20120608
  Serious: Yes (Hospitalization)
  Sender: FDA-Public Use
  Company Number: 163-21880-11042264

PATIENT
  Age: 84 Year
  Sex: Female
  Weight: 57.0625 kg

DRUGS (16)
  1. AMLODIPINE [Concomitant]
  2. TRIAMTERENE HYDROCHLOROTHIAZIDE (DYAZIDE) (UNKNOWN) [Concomitant]
  3. CENTRUM SILVER (CENTRUM SILVER) (UNKNOWN) [Concomitant]
  4. GLUCOSAMINE (GLUCOSAMINE) (UNKNOWN) [Concomitant]
  5. CHOLESTYRAMINE (COLESTYRAMINE) (UNKNOWN) [Concomitant]
  6. VIACTIV (CALCIUM) (UNKNOWN) [Concomitant]
  7. KLOR-CON (POTASSIUM CHLORIDE) (UNKNOWN) [Concomitant]
  8. VITAMIN B12 (CYANOCOBALAMIN) (UNKNOWN) [Concomitant]
  9. ASPIRIN [Concomitant]
  10. REVLIMID [Suspect]
     Indication: MULTIPLE MYELOMA
     Dosage: 15 MG, DAILY FOR 21 DAYS, PO
     Route: 048
     Dates: start: 20110403, end: 20110412
  11. DEXAMETHASONE [Concomitant]
  12. ALIGN (BIFIDOBACTERIUM INFANTIS) (UNKNOWN) [Concomitant]
  13. VITAMIN D (ERGOCALCIFEROL) (UNKNOWN) [Concomitant]
  14. MAGNESIUM (MAGNESIUM) (UNKNOWN) [Concomitant]
  15. IRON (IRON) (UNKNOWN) [Concomitant]
  16. ACIDOPHILUS (INFLORAN) (UNKNOWN) [Concomitant]

REACTIONS (5)
  - ASTHENIA [None]
  - DIARRHOEA [None]
  - NAUSEA [None]
  - FATIGUE [None]
  - VOMITING [None]
